FAERS Safety Report 10210042 (Version 1)
Quarter: 2014Q2

REPORT INFORMATION
  Report Type: Spontaneous
  Country: US (occurrence: US)
  Receive Date: 20140602
  Receipt Date: 20140602
  Transmission Date: 20141212
  Serious: Yes (Other)
  Sender: FDA-Public Use
  Company Number: US-SA-2014SA069502

PATIENT
  Sex: Male

DRUGS (1)
  1. CEREZYME [Suspect]
     Indication: GAUCHER^S DISEASE
     Dosage: DOSE:3600 UNIT(S)
     Route: 042
     Dates: start: 19991105

REACTIONS (4)
  - Spinal column stenosis [Unknown]
  - Back disorder [Unknown]
  - Pain [Unknown]
  - Dyspnoea [Unknown]
